FAERS Safety Report 8773790 (Version 6)
Quarter: 2013Q1

REPORT INFORMATION
  Report Type: Report from Study
  Country: FR (occurrence: FR)
  Receive Date: 20120907
  Receipt Date: 20130320
  Transmission Date: 20140127
  Serious: Yes (Hospitalization)
  Sender: FDA-Public Use
  Company Number: FR-ROCHE-1114815

PATIENT
  Age: 38 Year
  Sex: Male
  Weight: 69 kg

DRUGS (2)
  1. PEG-INTERFERON ALFA 2A [Suspect]
     Indication: CHRONIC HEPATITIS B
     Route: 058
     Dates: start: 20120203
  2. ENTECAVIR [Suspect]
     Indication: CHRONIC HEPATITIS B
     Route: 065
     Dates: start: 20090825

REACTIONS (1)
  - Diabetes insipidus [Recovered/Resolved]
